FAERS Safety Report 21316151 (Version 1)
Quarter: 2022Q3

REPORT INFORMATION
  Report Type: Spontaneous
  Country: US (occurrence: US)
  Receive Date: 20220910
  Receipt Date: 20220910
  Transmission Date: 20221027
  Serious: Yes (Other)
  Sender: FDA-Public Use
  Company Number: US-LUPIN PHARMACEUTICALS INC.-2022-10948

PATIENT
  Age: 21 Year
  Sex: Female

DRUGS (7)
  1. CLOBETASOL [Suspect]
     Active Substance: CLOBETASOL
     Indication: Alopecia areata
     Dosage: UNK
     Route: 061
  2. MINOXIDIL [Suspect]
     Active Substance: MINOXIDIL
     Indication: Alopecia areata
     Dosage: UNK
     Route: 061
  3. INFLIXIMAB [Concomitant]
     Active Substance: INFLIXIMAB
     Indication: Chorioretinitis
     Dosage: 5 MILLIGRAM/KILOGRAM (Q4 WEEK)
     Route: 042
     Dates: start: 2019, end: 2019
  4. INFLIXIMAB [Concomitant]
     Active Substance: INFLIXIMAB
     Dosage: 10 MILLIGRAM/KILOGRAM (Q4 WEEK)
     Route: 042
     Dates: start: 2019, end: 2019
  5. METHOTREXATE [Concomitant]
     Active Substance: METHOTREXATE
     Indication: Chorioretinitis
     Dosage: UNK
     Route: 048
     Dates: start: 2019, end: 2019
  6. TOCILIZUMAB [Concomitant]
     Active Substance: TOCILIZUMAB
     Indication: Chorioretinitis
     Dosage: 4 MILLIGRAM/KILOGRAM (Q4 WEEK)
     Route: 042
     Dates: start: 2019
  7. TOCILIZUMAB [Concomitant]
     Active Substance: TOCILIZUMAB
     Dosage: 6 MILLIGRAM/KILOGRAM (Q4 WEEK)
     Route: 042
     Dates: start: 2020

REACTIONS (2)
  - Drug ineffective for unapproved indication [Unknown]
  - Off label use [Unknown]
